FAERS Safety Report 11907611 (Version 2)
Quarter: 2016Q3

REPORT INFORMATION
  Report Type: Report from Study
  Country: CA (occurrence: CA)
  Receive Date: 20160111
  Receipt Date: 20160901
  Transmission Date: 20161109
  Serious: Yes (Death, Hospitalization)
  Sender: FDA-Public Use
  Company Number: PHHY2016CA001291

PATIENT
  Sex: Male

DRUGS (1)
  1. EXJADE [Suspect]
     Active Substance: DEFERASIROX
     Indication: ANAEMIA
     Dosage: 625 MG, QD
     Route: 048
     Dates: start: 20150810, end: 201512

REACTIONS (10)
  - Pleurisy [Unknown]
  - Splenic infarction [Unknown]
  - Stenotrophomonas infection [Unknown]
  - Cough [Unknown]
  - Abdominal pain [Unknown]
  - Pyrexia [Unknown]
  - Death [Fatal]
  - Decreased appetite [Unknown]
  - Fatigue [Unknown]
  - Neutropenia [Unknown]
